FAERS Safety Report 17900604 (Version 1)
Quarter: 2020Q2

REPORT INFORMATION
  Report Type: Spontaneous
  Country: US (occurrence: US)
  Receive Date: 20200615
  Receipt Date: 20200615
  Transmission Date: 20200714
  Serious: No
  Sender: FDA-Public Use
  Company Number: None

PATIENT
  Age: 72 Year
  Sex: Female
  Weight: 52.16 kg

DRUGS (1)
  1. ZOLEDRONIC ACID 5 MG/100 ML, 5 MG/100ML [Suspect]
     Active Substance: ZOLEDRONIC ACID
     Indication: SENILE OSTEOPOROSIS
     Dosage: ?          OTHER FREQUENCY:OVER NO LESS THAN ;?
     Route: 042
     Dates: start: 201806

REACTIONS (1)
  - Death [None]
